FAERS Safety Report 11133234 (Version 12)
Quarter: 2016Q1

REPORT INFORMATION
  Report Type: Spontaneous
  Country: JP (occurrence: JP)
  Receive Date: 20150522
  Receipt Date: 20160226
  Transmission Date: 20160525
  Serious: Yes (Death, Life-Threatening, Hospitalization, Other)
  Sender: FDA-Public Use
  Company Number: JP-B.I. PHARMACEUTICALS,INC./RIDGEFIELD-2015-BI-26833NB

PATIENT
  Age: 71 Year
  Sex: Female
  Weight: 40.3 kg

DRUGS (12)
  1. GILOTRIF [Suspect]
     Active Substance: AFATINIB
     Indication: NON-SMALL CELL LUNG CANCER
     Dosage: 30 MG
     Route: 048
     Dates: start: 20150410, end: 20150423
  2. TRAZODONE [Concomitant]
     Active Substance: TRAZODONE HYDROCHLORIDE
     Indication: DEPRESSION
     Dosage: 25 MG
     Route: 048
     Dates: start: 20150410, end: 20150423
  3. TSUMURA DAIKENCHUTO EXTRACT GRANULES FOR ETHICAL USE [Concomitant]
     Active Substance: HERBALS
     Indication: CONSTIPATION
     Dosage: 7.5 G
     Route: 048
     Dates: start: 20150421, end: 20150423
  4. DECADRON [Concomitant]
     Active Substance: DEXAMETHASONE
     Indication: METASTASES TO CENTRAL NERVOUS SYSTEM
     Dosage: 2.5 MG
     Route: 048
     Dates: start: 20150410, end: 20150423
  5. ZYPREXA [Concomitant]
     Active Substance: OLANZAPINE
     Indication: DEPRESSION
     Dosage: 2.5 MG
     Route: 048
     Dates: start: 20150410, end: 20150423
  6. BROTIZOLAM [Concomitant]
     Active Substance: BROTIZOLAM
     Indication: INSOMNIA
     Dosage: 0.25 MG
     Route: 048
     Dates: start: 20150410, end: 20150423
  7. SENNOSIDE [Concomitant]
     Active Substance: SENNOSIDES
     Indication: CONSTIPATION
     Dosage: 24 MG
     Route: 048
     Dates: start: 20150413, end: 20150416
  8. MAGMITT [Concomitant]
     Active Substance: MAGNESIUM OXIDE
     Indication: CONSTIPATION
     Dosage: 990 MG
     Route: 048
     Dates: start: 20150421, end: 20150423
  9. EXCEGRAN [Concomitant]
     Active Substance: ZONISAMIDE
     Indication: EPILEPSY
     Dosage: 200 MG
     Route: 048
     Dates: start: 20150410, end: 20150423
  10. LANSOPRAZOLE OD [Concomitant]
     Active Substance: LANSOPRAZOLE
     Indication: GASTROOESOPHAGEAL REFLUX DISEASE
     Dosage: 15 MG
     Route: 048
     Dates: start: 20150410, end: 20150423
  11. ONEALFA [Concomitant]
     Active Substance: ALFACALCIDOL
     Indication: OSTEOPOROSIS
     Dosage: 1 MCG
     Route: 048
     Dates: start: 20150410, end: 20150423
  12. HALCION [Concomitant]
     Active Substance: TRIAZOLAM
     Indication: INSOMNIA
     Dosage: 0.25 MG
     Route: 048
     Dates: start: 20150410, end: 20150423

REACTIONS (11)
  - Haematochezia [Not Recovered/Not Resolved]
  - Oesophageal perforation [Fatal]
  - Duodenal perforation [Fatal]
  - Mucosal erosion [Not Recovered/Not Resolved]
  - Peritonitis [Unknown]
  - Vomiting [Recovered/Resolved]
  - Sepsis [Fatal]
  - Pyrexia [Not Recovered/Not Resolved]
  - Diarrhoea [Not Recovered/Not Resolved]
  - Decreased appetite [Not Recovered/Not Resolved]
  - Depressed level of consciousness [Not Recovered/Not Resolved]

NARRATIVE: CASE EVENT DATE: 20150424
